FAERS Safety Report 25985080 (Version 1)
Quarter: 2025Q4

REPORT INFORMATION
  Report Type: Spontaneous
  Country: CN (occurrence: CN)
  Receive Date: 20251031
  Receipt Date: 20251031
  Transmission Date: 20260117
  Serious: Yes (Other)
  Sender: JOHNSON AND JOHNSON
  Company Number: CN-JNJFOC-20251036262

PATIENT

DRUGS (1)
  1. RYBREVANT [Suspect]
     Active Substance: AMIVANTAMAB-VMJW
     Indication: Non-small cell lung cancer metastatic

REACTIONS (25)
  - Pneumonitis [Unknown]
  - Pneumothorax [Unknown]
  - Pulmonary oedema [Unknown]
  - Interstitial lung disease [Unknown]
  - Ocular toxicity [Unknown]
  - Anal ulcer [Unknown]
  - Acne [Unknown]
  - Dermatitis acneiform [Unknown]
  - Skin toxicity [Unknown]
  - Scab [Unknown]
  - Skin haemorrhage [Unknown]
  - Rash [Unknown]
  - Skin fissures [Unknown]
  - Skin ulcer [Unknown]
  - Throat irritation [Unknown]
  - Generalised oedema [Unknown]
  - Mucosal inflammation [Unknown]
  - Oxygen saturation decreased [Unknown]
  - Paronychia [Unknown]
  - Folliculitis [Unknown]
  - Flushing [Unknown]
  - Musculoskeletal pain [Unknown]
  - Hypoalbuminaemia [Unknown]
  - Infusion related reaction [Unknown]
  - Tachycardia [Unknown]
